FAERS Safety Report 8801982 (Version 2)
Quarter: 2012Q4

REPORT INFORMATION
  Report Type: 
  Country: US (occurrence: US)
  Receive Date: 20120921
  Receipt Date: 20121108
  Transmission Date: 20130627
  Serious: Yes (Hospitalization)
  Sender: FDA-Public Use
  Company Number: US-BAYER-2012-096121

PATIENT
  Age: 50 Year
  Sex: Female
  Weight: 58.96 kg

DRUGS (5)
  1. YASMIN [Suspect]
     Indication: POLYCYSTIC OVARIAN SYNDROME
     Dosage: UNK
     Dates: start: 20031216, end: 20040604
  2. INDOCIN [Concomitant]
     Dosage: UNK
     Dates: start: 20040603
  3. ASPIRIN [Concomitant]
  4. PRILOSEC [Concomitant]
  5. ULTRAM [Concomitant]

REACTIONS (28)
  - Pulmonary embolism [None]
  - Pelvic venous thrombosis [None]
  - Vena cava thrombosis [None]
  - Cardiomegaly [None]
  - Chest pain [None]
  - Dyspnoea [None]
  - Pleural effusion [None]
  - Headache [None]
  - Visual impairment [None]
  - Aphasia [None]
  - Pain [None]
  - Flank pain [None]
  - Abdominal pain upper [None]
  - Fatigue [None]
  - Painful respiration [None]
  - Nausea [None]
  - Vomiting [None]
  - Asthenia [None]
  - Poor quality sleep [None]
  - Oxygen consumption increased [None]
  - Dizziness [None]
  - Hypoaesthesia [None]
  - Visual impairment [None]
  - Paraesthesia [None]
  - Hypoaesthesia [None]
  - Lung infiltration [None]
  - Injury [None]
  - Pain [None]
